FAERS Safety Report 17445354 (Version 2)
Quarter: 2020Q3

REPORT INFORMATION
  Report Type: Report from Study
  Country: BR (occurrence: BR)
  Receive Date: 20200221
  Receipt Date: 20200325
  Transmission Date: 20201104
  Serious: Yes (Other)
  Sender: FDA-Public Use
  Company Number: NVSC2019BR044780

PATIENT
  Age: 73 Year
  Sex: Female

DRUGS (4)
  1. XOLAIR [Suspect]
     Active Substance: OMALIZUMAB
     Dosage: UNK (1 AMPOULE, EVERY 15 DAYS)
     Route: 065
     Dates: start: 201908
  2. AZITHROMYCIN ANHYDROUS. [Suspect]
     Active Substance: AZITHROMYCIN ANHYDROUS
     Indication: PHARYNGITIS
     Dosage: 1000 OT (2 DF)
     Route: 065
  3. XOLAIR [Suspect]
     Active Substance: OMALIZUMAB
     Indication: CHRONIC SPONTANEOUS URTICARIA
     Dosage: 150 MG (TWICE A MONTH)
     Route: 065
     Dates: start: 20190809
  4. XOLAIR [Suspect]
     Active Substance: OMALIZUMAB
     Dosage: UNK
     Route: 065
     Dates: start: 20200316

REACTIONS (24)
  - Urinary retention [Recovered/Resolved]
  - Burning sensation [Recovering/Resolving]
  - Pruritus [Not Recovered/Not Resolved]
  - Off label use [Not Recovered/Not Resolved]
  - Urticaria [Not Recovered/Not Resolved]
  - Drug dependence [Not Recovered/Not Resolved]
  - Cough [Not Recovered/Not Resolved]
  - Feeling of despair [Recovering/Resolving]
  - Blood cholesterol increased [Recovering/Resolving]
  - Blood triglycerides increased [Unknown]
  - Drug hypersensitivity [Not Recovered/Not Resolved]
  - Poisoning [Not Recovered/Not Resolved]
  - Insomnia [Recovering/Resolving]
  - Abdominal pain [Recovered/Resolved]
  - Diverticulum [Not Recovered/Not Resolved]
  - Migraine [Not Recovered/Not Resolved]
  - Malaise [Not Recovered/Not Resolved]
  - Dental discomfort [Recovered/Resolved]
  - Flatulence [Recovered/Resolved]
  - Gastritis [Not Recovered/Not Resolved]
  - Pharyngitis [Recovering/Resolving]
  - Fatigue [Not Recovered/Not Resolved]
  - Headache [Not Recovered/Not Resolved]
  - Influenza [Recovering/Resolving]

NARRATIVE: CASE EVENT DATE: 20190809
